FAERS Safety Report 5300749-2 (Version None)
Quarter: 2007Q2

REPORT INFORMATION
  Report Type: 
  Country: None (occurrence: None)
  Receive Date: 20070418
  Receipt Date: 20070411
  Transmission Date: 20071010
  Serious: Yes (Death)
  Sender: FDA-Public Use
  Company Number: US-SANOFI-SYNTHELABO-A03200702594

PATIENT
  Sex: Male
  Weight: 103.4 kg

DRUGS (1)
  1. PLAVIX [Suspect]
     Indication: DRUG USE FOR UNKNOWN INDICATION
     Dosage: UNK
     Route: 048

REACTIONS (3)
  - CIRCULATORY COLLAPSE [None]
  - LUNG NEOPLASM MALIGNANT [None]
  - PNEUMONIA [None]
